FAERS Safety Report 6698620-7 (Version None)
Quarter: 2010Q2

REPORT INFORMATION
  Report Type: 
  Country: None (occurrence: None)
  Receive Date: 20100427
  Receipt Date: 20100416
  Transmission Date: 20101027
  Serious: Yes (Life-Threatening, Hospitalization)
  Sender: FDA-Public Use
  Company Number: PL-PFIZER INC-2008014532

PATIENT
  Age: 50 Year
  Sex: Male
  Weight: 93.7 kg

DRUGS (9)
  1. *PLACEBO [Suspect]
     Indication: COLORECTAL CANCER METASTATIC
     Dosage: 0 MG, 1X/DAY
     Route: 048
     Dates: start: 20080208, end: 20080212
  2. IRINOTECAN HCL [Suspect]
     Indication: COLORECTAL CANCER METASTATIC
     Dosage: 180 MG/M2, EVERY OTHER WEEK
     Route: 042
     Dates: start: 20080208, end: 20080208
  3. *CALCIUM FOLINATE [Suspect]
     Indication: COLORECTAL CANCER METASTATIC
     Dosage: 200 MG/M2, TDD 442, EVERY OTHER WEEK
     Route: 042
     Dates: start: 20080208, end: 20080208
  4. FLUOROURACIL [Suspect]
     Indication: COLORECTAL CANCER METASTATIC
     Dosage: 2400 MG/M2, EVERY OTHER WEEK
     Route: 042
     Dates: start: 20080208
  5. FLUOROURACIL [Suspect]
     Dosage: 400 MG/M2, EVERY OTHER WEEK
     Route: 042
     Dates: start: 20080208, end: 20080210
  6. IMIDAPRIL [Concomitant]
     Dosage: DAILY
     Route: 048
     Dates: start: 20070501
  7. METOPROLOL [Concomitant]
     Dosage: DAILY
     Route: 048
     Dates: start: 20070501
  8. ACETYLSALICYLIC ACID [Concomitant]
     Dosage: DAILY
     Route: 048
     Dates: start: 20070501
  9. INDAPAMIDE [Concomitant]
     Dosage: DAILY
     Route: 048
     Dates: start: 20070501

REACTIONS (1)
  - VENTRICULAR FIBRILLATION [None]
